FAERS Safety Report 7021548-X (Version None)
Quarter: 2010Q3

REPORT INFORMATION
  Report Type: 
  Country: None (occurrence: None)
  Receive Date: 20100928
  Receipt Date: 20100920
  Transmission Date: 20110219
  Serious: Yes (Death)
  Sender: FDA-Public Use
  Company Number: 2010US003852

PATIENT
  Age: 42 Year
  Sex: Female

DRUGS (1)
  1. PROGRAF [Suspect]
     Indication: RENAL AND PANCREAS TRANSPLANT

REACTIONS (3)
  - BLOOD PRESSURE INCREASED [None]
  - DIALYSIS [None]
  - KIDNEY TRANSPLANT REJECTION [None]
